FAERS Safety Report 21169406 (Version 4)
Quarter: 2024Q4

REPORT INFORMATION
  Report Type: Other
  Country: AU (occurrence: AU)
  Receive Date: 20220804
  Receipt Date: 20241004
  Transmission Date: 20250115
  Serious: Yes (Other)
  Sender: TOLMAR
  Company Number: AU-TOLMAR, INC.-22AU035697

PATIENT
  Sex: Male

DRUGS (2)
  1. ELIGARD [Suspect]
     Active Substance: LEUPROLIDE ACETATE
     Indication: Prostate cancer
     Dosage: 22.5 MILLIGRAM, Q 3 MONTH
  2. ELIGARD [Suspect]
     Active Substance: LEUPROLIDE ACETATE
     Indication: Prostate cancer
     Dosage: 7.5 MILLIGRAM, Q 1 MONTH
     Dates: start: 20220625

REACTIONS (12)
  - Myocardial infarction [Unknown]
  - Mood altered [Not Recovered/Not Resolved]
  - Weight decreased [Not Recovered/Not Resolved]
  - Tooth loss [Unknown]
  - Apathy [Unknown]
  - Product administered by wrong person [Unknown]
  - Pain [Unknown]
  - Asthenia [Unknown]
  - Arthralgia [Unknown]
  - Muscle atrophy [Unknown]
  - Hot flush [Unknown]
  - Fatigue [Unknown]
